FAERS Safety Report 5144209-0 (Version None)
Quarter: 2006Q4

REPORT INFORMATION
  Report Type: 
  Country: None (occurrence: None)
  Receive Date: 20061106
  Receipt Date: 20030110
  Transmission Date: 20070319
  Serious: Yes (Hospitalization)
  Sender: FDA-Public Use
  Company Number: ES-ROCHE-467790

PATIENT
  Age: 19 Year
  Sex: Male

DRUGS (3)
  1. ALL-TRANS-RETINOIC ACID [Suspect]
     Indication: ACUTE PROMYELOCYTIC LEUKAEMIA
     Route: 065
  2. DAUNORUBICIN HCL [Suspect]
     Indication: ACUTE PROMYELOCYTIC LEUKAEMIA
     Dosage: REGIMEN REPORTED AS ^60 MG/M2/DAY X 3 DAYS^.
     Route: 065
  3. CYTARABINE [Suspect]
     Indication: ACUTE PROMYELOCYTIC LEUKAEMIA
     Dosage: REGIMEN REPORTED AS ^200 MG/M2/DAY X 7 DAYS^.
     Route: 065

REACTIONS (4)
  - CARDIAC TAMPONADE [None]
  - CARDIOGENIC SHOCK [None]
  - PERICARDIAL EFFUSION [None]
  - RETINOIC ACID SYNDROME [None]
